FAERS Safety Report 7771607-9 (Version None)
Quarter: 2011Q3

REPORT INFORMATION
  Report Type: 
  Country: None (occurrence: None)
  Receive Date: 20110922
  Receipt Date: 20101206
  Transmission Date: 20111222
  Serious: No
  Sender: FDA-Public Use
  Company Number: US-ASTRAZENECA-2010SE45107

PATIENT
  Age: 19724 Day
  Sex: Female
  Weight: 49.9 kg

DRUGS (9)
  1. SEROQUEL [Suspect]
     Route: 048
  2. SEROQUEL [Suspect]
     Route: 048
     Dates: end: 20100825
  3. SEROQUEL [Suspect]
     Indication: DEPRESSION
     Dosage: FROM 25 MG TO 75 MG QHS
     Route: 048
     Dates: start: 20040601
  4. DIAZEPAM [Concomitant]
     Indication: ANXIETY
     Route: 048
  5. SEROQUEL [Suspect]
     Indication: ANXIETY
     Dosage: FROM 25 MG TO 75 MG QHS
     Route: 048
     Dates: start: 20040601
  6. SEROQUEL [Suspect]
     Route: 048
  7. SEROQUEL [Suspect]
     Route: 048
  8. SEROQUEL [Suspect]
     Route: 048
  9. SEROQUEL [Suspect]
     Route: 048
     Dates: end: 20100825

REACTIONS (2)
  - CHEST DISCOMFORT [None]
  - TREMOR [None]
